FAERS Safety Report 24406404 (Version 1)
Quarter: 2024Q4

REPORT INFORMATION
  Report Type: Spontaneous
  Country: GR (occurrence: GR)
  Receive Date: 20241007
  Receipt Date: 20241007
  Transmission Date: 20250115
  Serious: Yes (Other)
  Sender: NOVARTIS
  Company Number: GR-002147023-NVSC2024GR196640

PATIENT
  Age: 40 Year
  Sex: Female

DRUGS (1)
  1. COSENTYX [Suspect]
     Active Substance: SECUKINUMAB
     Indication: Hidradenitis
     Dosage: 300 MG
     Route: 065
     Dates: start: 202401

REACTIONS (3)
  - Lymphadenopathy [Not Recovered/Not Resolved]
  - Dermatosis [Not Recovered/Not Resolved]
  - Purulence [Not Recovered/Not Resolved]
